FAERS Safety Report 19930674 (Version 1)
Quarter: 2021Q4

REPORT INFORMATION
  Report Type: Spontaneous
  Country: NL (occurrence: NL)
  Receive Date: 20211007
  Receipt Date: 20211007
  Transmission Date: 20220303
  Serious: Yes (Life-Threatening, Other)
  Sender: FDA-Public Use
  Company Number: None

PATIENT
  Age: 59 Year
  Sex: Female
  Weight: 85 kg

DRUGS (3)
  1. QUETIAPINE [Suspect]
     Active Substance: QUETIAPINE
     Indication: Obsessive thoughts
     Dosage: 25 MILLIGRAM, QD (25 MG PER DAG ,VOOR 3 WEKEN, TEGELIJKERTIJD BEGONNEN, NU GESTOPT)
     Dates: start: 20210505, end: 20210601
  2. PFIZER-BIONTECH COVID-19 VACCINE [Suspect]
     Active Substance: TOZINAMERAN
     Indication: COVID-19 immunisation
     Dosage: UNK
     Dates: start: 20210508, end: 20210508
  3. TEMAZEPAM [Concomitant]
     Active Substance: TEMAZEPAM
     Dosage: 20 MILLIGRAM (TABLET, 20 MG (MILLIGRAM)

REACTIONS (9)
  - Urinary retention [Recovering/Resolving]
  - Oedema peripheral [Not Recovered/Not Resolved]
  - Decreased appetite [Recovering/Resolving]
  - Thirst [Recovering/Resolving]
  - Lymph node pain [Not Recovered/Not Resolved]
  - Fatigue [Not Recovered/Not Resolved]
  - Malaise [Not Recovered/Not Resolved]
  - Headache [Not Recovered/Not Resolved]
  - Nausea [Recovering/Resolving]

NARRATIVE: CASE EVENT DATE: 20210508
